FAERS Safety Report 13307223 (Version 1)
Quarter: 2017Q1

REPORT INFORMATION
  Report Type: Spontaneous
  Country: AU (occurrence: AU)
  Receive Date: 20170308
  Receipt Date: 20170308
  Transmission Date: 20170428
  Serious: Yes (Hospitalization, Other)
  Sender: FDA-Public Use
  Company Number: AU-009507513-0308AUS00101

PATIENT
  Age: 61 Year
  Sex: Male

DRUGS (3)
  1. SIMVASTATIN. [Suspect]
     Active Substance: SIMVASTATIN
     Dosage: UNK
     Route: 048
  2. KETOCONAZOLE. [Interacting]
     Active Substance: KETOCONAZOLE
  3. CELECOXIB. [Interacting]
     Active Substance: CELECOXIB

REACTIONS (4)
  - Myopathy [Recovered/Resolved]
  - Drug interaction [Unknown]
  - Rhabdomyolysis [Recovered/Resolved]
  - Myoglobinuria [Recovered/Resolved]
